FAERS Safety Report 26129759 (Version 1)
Quarter: 2025Q4

REPORT INFORMATION
  Report Type: Spontaneous
  Country: JP (occurrence: JP)
  Receive Date: 20251208
  Receipt Date: 20251208
  Transmission Date: 20260118
  Serious: Yes (Hospitalization, Other)
  Sender: NEXUS PHARMACEUTICALS
  Company Number: JP-Nexus Pharma-000538

PATIENT
  Age: 67 Year
  Sex: Female
  Weight: 39.5 kg

DRUGS (2)
  1. TACROLIMUS [Suspect]
     Active Substance: TACROLIMUS
     Indication: Dermatomyositis
  2. PREDNISOLONE [Suspect]
     Active Substance: PREDNISOLONE
     Indication: Dermatomyositis

REACTIONS (5)
  - Interstitial lung disease [Recovered/Resolved]
  - Skin lesion [Recovered/Resolved]
  - Muscle disorder [Recovered/Resolved]
  - Corynebacterium infection [Recovered/Resolved]
  - Pneumonia [Recovered/Resolved]
